FAERS Safety Report 26143992 (Version 1)
Quarter: 2025Q4

REPORT INFORMATION
  Report Type: Spontaneous
  Country: GB (occurrence: GB)
  Receive Date: 20251211
  Receipt Date: 20251211
  Transmission Date: 20260119
  Serious: Yes (Hospitalization, Other)
  Sender: ACCORD
  Company Number: None

PATIENT
  Age: 81 Year
  Sex: Male

DRUGS (15)
  1. AMITRIPTYLINE [Suspect]
     Active Substance: AMITRIPTYLINE
     Indication: Product used for unknown indication
  2. FLUCLOXACILLIN [Suspect]
     Active Substance: FLUCLOXACILLIN
     Indication: Product used for unknown indication
  3. BENDROFLUMETHIAZIDE [Concomitant]
     Active Substance: BENDROFLUMETHIAZIDE
  4. MACROGOL COMP [Concomitant]
     Dosage: ORAL POWDER SACHETS NPF SUGAR FREE
  5. ACETAMINOPHEN [Concomitant]
     Active Substance: ACETAMINOPHEN
  6. IBUPROFEN [Concomitant]
     Active Substance: IBUPROFEN
  7. LANSOPRAZOLE [Concomitant]
     Active Substance: LANSOPRAZOLE
  8. DOCUSATE [Concomitant]
     Active Substance: DOCUSATE
  9. ATORVASTATIN [Concomitant]
     Active Substance: ATORVASTATIN
  10. ASPIRIN [Concomitant]
     Active Substance: ASPIRIN
  11. PERINDOPRIL [Concomitant]
     Active Substance: PERINDOPRIL
  12. PARAFFIN [Concomitant]
     Active Substance: PARAFFIN
  13. ACYCLOVIR [Concomitant]
     Active Substance: ACYCLOVIR
  14. SENNA [Concomitant]
     Active Substance: SENNOSIDES
     Dosage: STRENGTH: 7.5MG TABLETS
  15. ATENOLOL [Concomitant]
     Active Substance: ATENOLOL

REACTIONS (5)
  - Constipation [Unknown]
  - Jaundice [Unknown]
  - Dysphagia [Unknown]
  - Drug-induced liver injury [Unknown]
  - Abnormal loss of weight [Unknown]
